FAERS Safety Report 8313145-0 (Version None)
Quarter: 2012Q2

REPORT INFORMATION
  Report Type: 
  Country: None (occurrence: None)
  Receive Date: 20120424
  Receipt Date: 20120411
  Transmission Date: 20120825
  Serious: Yes (Life-Threatening)
  Sender: FDA-Public Use
  Company Number: 1255567

PATIENT
  Age: 49 Year
  Sex: Female
  Weight: 152 kg

DRUGS (8)
  1. PRECEDEX [Suspect]
     Indication: ANAESTHESIA
     Dosage: 100MCG, CONTINUOUS, INTRAVENOUS (NOT OTHERWISE SPECIFIED)
     Route: 042
     Dates: start: 20120323, end: 20120323
  2. PROPOFOL [Concomitant]
  3. MORPHINE [Concomitant]
  4. (REMIFENTANIL) [Concomitant]
  5. ROCURONIUM BROMIDE [Concomitant]
  6. QUELICIN [Concomitant]
  7. VERSED [Concomitant]
  8. DECADRON [Concomitant]

REACTIONS (1)
  - CARDIAC ARREST [None]
